FAERS Safety Report 8448701-2 (Version None)
Quarter: 2012Q2

REPORT INFORMATION
  Report Type: 
  Country: None (occurrence: None)
  Receive Date: 20120619
  Receipt Date: 20120615
  Transmission Date: 20120825
  Serious: No
  Sender: FDA-Public Use
  Company Number: US-TEVA-343320USA

PATIENT
  Sex: Female

DRUGS (7)
  1. DROSPIRENONE AND ETHINYL ESTRADIOL [Concomitant]
     Indication: MENSTRUATION IRREGULAR
  2. BUPROPION HCL [Concomitant]
     Route: 048
  3. NUVIGIL [Suspect]
     Indication: CIRCADIAN RHYTHM SLEEP DISORDER
  4. DROSPIRENONE AND ETHINYL ESTRADIOL [Concomitant]
     Indication: CONTRACEPTION
     Route: 048
  5. NUVIGIL [Suspect]
     Indication: ATTENTION DEFICIT/HYPERACTIVITY DISORDER
     Dosage: 150 MILLIGRAM;
     Route: 048
     Dates: start: 20120524
  6. NUVIGIL [Suspect]
     Indication: SOMNOLENCE
  7. LAMOTRIGINE [Concomitant]
     Route: 048

REACTIONS (1)
  - METRORRHAGIA [None]
